FAERS Safety Report 14285925 (Version 1)
Quarter: 2017Q4

REPORT INFORMATION
  Report Type: Spontaneous
  Country: IT (occurrence: IT)
  Receive Date: 20171214
  Receipt Date: 20171214
  Transmission Date: 20180321
  Serious: Yes (Hospitalization, Other)
  Sender: FDA-Public Use
  Company Number: IT-VALIDUS PHARMACEUTICALS LLC-IT-2017VAL001642

PATIENT
  Age: 62 Year
  Sex: Female

DRUGS (4)
  1. CEFTRIAXONE SODIUM. [Suspect]
     Active Substance: CEFTRIAXONE SODIUM
     Indication: SERRATIA INFECTION
     Dosage: 2 G, QD
     Route: 065
  2. PENTOXIFYLLINE. [Suspect]
     Active Substance: PENTOXIFYLLINE
     Indication: EMBOLIA CUTIS MEDICAMENTOSA
     Dosage: 800 MG, QD
     Route: 065
  3. DICLOFENAC [Suspect]
     Active Substance: DICLOFENAC
     Indication: BACK PAIN
     Dosage: UNK
     Route: 030
  4. HEPARIN [Suspect]
     Active Substance: HEPARIN SODIUM
     Indication: EMBOLIA CUTIS MEDICAMENTOSA
     Dosage: 5000 IU, BID
     Route: 065

REACTIONS (14)
  - Serratia infection [Unknown]
  - Blood lactate dehydrogenase increased [Unknown]
  - Aspartate aminotransferase increased [Unknown]
  - Purulent discharge [Unknown]
  - Musculoskeletal pain [Unknown]
  - Blood creatine phosphokinase increased [Unknown]
  - Condition aggravated [Unknown]
  - Eschar [Unknown]
  - Therapeutic response decreased [Unknown]
  - Embolia cutis medicamentosa [Unknown]
  - Injection site haemorrhage [Unknown]
  - Loss of consciousness [Unknown]
  - Myositis [Unknown]
  - Skin necrosis [Unknown]
